FAERS Safety Report 25414218 (Version 1)
Quarter: 2025Q2

REPORT INFORMATION
  Report Type: Spontaneous
  Country: IN (occurrence: IN)
  Receive Date: 20250609
  Receipt Date: 20250609
  Transmission Date: 20250717
  Serious: Yes (Death)
  Sender: PFIZER
  Company Number: IN-PFIZER INC-PV202500047901

PATIENT
  Age: 72 Year
  Sex: Male

DRUGS (2)
  1. LORLATINIB [Suspect]
     Active Substance: LORLATINIB
     Indication: Non-small cell lung cancer metastatic
     Dosage: 50 MG, ALTERNATE DAY (ONCE FOR 3 MONTHS)
     Route: 048
  2. LORLATINIB [Suspect]
     Active Substance: LORLATINIB
     Dates: start: 20250419

REACTIONS (2)
  - Death [Fatal]
  - Off label use [Unknown]
